FAERS Safety Report 11184179 (Version 3)
Quarter: 2016Q1

REPORT INFORMATION
  Report Type: Spontaneous
  Country: US (occurrence: US)
  Receive Date: 20150612
  Receipt Date: 20160121
  Transmission Date: 20160525
  Serious: No
  Sender: FDA-Public Use
  Company Number: US-PFIZER INC-2015192727

PATIENT
  Age: 66 Year
  Sex: Male
  Weight: 86 kg

DRUGS (1)
  1. TORISEL [Suspect]
     Active Substance: TEMSIROLIMUS
     Indication: METASTATIC RENAL CELL CARCINOMA
     Dosage: 20MG RECONSTITUTED IN 250ML OF NORMAL SALINE, WEEKLY
     Route: 042
     Dates: start: 20150305, end: 2015

REACTIONS (3)
  - Metastatic renal cell carcinoma [Unknown]
  - Lymphoedema [Unknown]
  - Disease progression [Unknown]

NARRATIVE: CASE EVENT DATE: 2015
